FAERS Safety Report 6373461-9 (Version None)
Quarter: 2009Q3

REPORT INFORMATION
  Report Type: 
  Country: None (occurrence: None)
  Receive Date: 20090924
  Receipt Date: 20090326
  Transmission Date: 20100115
  Serious: No
  Sender: FDA-Public Use
  Company Number: US-ASTRAZENECA-2009UW07219

PATIENT
  Sex: Male
  Weight: 59 kg

DRUGS (2)
  1. SEROQUEL [Suspect]
     Route: 048
     Dates: start: 20090303, end: 20090319
  2. SEROQUEL XR [Concomitant]
     Route: 048
     Dates: start: 20081201

REACTIONS (8)
  - BALANCE DISORDER [None]
  - DECREASED APPETITE [None]
  - DELUSIONAL DISORDER, PERSECUTORY TYPE [None]
  - DEPRESSED LEVEL OF CONSCIOUSNESS [None]
  - DISORIENTATION [None]
  - DYSPNOEA [None]
  - FEELING ABNORMAL [None]
  - MENTAL IMPAIRMENT [None]
